FAERS Safety Report 23108707 (Version 5)
Quarter: 2025Q2

REPORT INFORMATION
  Report Type: Report from Study
  Country: CO (occurrence: CO)
  Receive Date: 20231026
  Receipt Date: 20250606
  Transmission Date: 20250717
  Serious: No
  Sender: TAKEDA
  Company Number: CO-TAKEDA-2023TUS098678

PATIENT
  Age: 34 Year
  Sex: Male
  Weight: 49 kg

DRUGS (1)
  1. VEDOLIZUMAB [Suspect]
     Active Substance: VEDOLIZUMAB
     Indication: Crohn^s disease

REACTIONS (3)
  - Abdominal pain [Unknown]
  - Treatment noncompliance [Unknown]
  - Product availability issue [Unknown]

NARRATIVE: CASE EVENT DATE: 20231010
